FAERS Safety Report 22238756 (Version 1)
Quarter: 2023Q2

REPORT INFORMATION
  Report Type: Spontaneous
  Country: US (occurrence: None)
  Receive Date: 20230420
  Receipt Date: 20230420
  Transmission Date: 20230722
  Serious: Yes (Disabling)
  Sender: FDA-Public Use
  Company Number: None

PATIENT
  Age: 57 Year
  Sex: Female
  Weight: 54 kg

DRUGS (5)
  1. GADOLINIUM [Suspect]
     Active Substance: GADOLINIUM
     Indication: Scan with contrast
     Dates: start: 20230327, end: 20230327
  2. METOPROLOL [Concomitant]
     Active Substance: METOPROLOL
  3. ZOFRAN [Concomitant]
     Active Substance: ONDANSETRON HYDROCHLORIDE
  4. KRILL OIL [Concomitant]
     Active Substance: DIETARY SUPPLEMENT\KRILL OIL
  5. DIETARY SUPPLEMENT [Concomitant]
     Active Substance: DIETARY SUPPLEMENT

REACTIONS (8)
  - Contrast media reaction [None]
  - Disturbance in attention [None]
  - Job dissatisfaction [None]
  - Malaise [None]
  - Nausea [None]
  - Headache [None]
  - Head discomfort [None]
  - Paraesthesia [None]

NARRATIVE: CASE EVENT DATE: 20230327
